FAERS Safety Report 8321343-5 (Version None)
Quarter: 2012Q2

REPORT INFORMATION
  Report Type: 
  Country: None (occurrence: None)
  Receive Date: 20120430
  Receipt Date: 20120424
  Transmission Date: 20120825
  Serious: Yes (Death, Hospitalization)
  Sender: FDA-Public Use
  Company Number: US-ACTELION-A-NJ2012-60943

PATIENT

DRUGS (5)
  1. VENTAVIS [Suspect]
     Indication: PULMONARY ARTERIAL HYPERTENSION
     Dosage: UNK
     Route: 055
     Dates: start: 20120201
  2. OXYGEN [Concomitant]
  3. REVATIO [Concomitant]
  4. COUMADIN [Concomitant]
  5. CALCIUM CHANNEL BLOCKERS [Concomitant]

REACTIONS (8)
  - DYSPNOEA [None]
  - ARRHYTHMIA [None]
  - FLUID RETENTION [None]
  - THORACIC CAVITY DRAINAGE [None]
  - DEATH [None]
  - PLEURAL EFFUSION [None]
  - DRUG DOSE OMISSION [None]
  - OEDEMA [None]
